FAERS Safety Report 9513868 (Version 1)
Quarter: 2013Q3

REPORT INFORMATION
  Report Type: Spontaneous
  Country: US (occurrence: US)
  Receive Date: 20130910
  Receipt Date: 20130910
  Transmission Date: 20140515
  Serious: No
  Sender: FDA-Public Use
  Company Number: US-ASTRAZENECA-2013SE51101

PATIENT
  Sex: Female

DRUGS (2)
  1. SYMBICORT [Suspect]
     Dosage: 160/4.5, UNKNOWN
     Route: 055
  2. SYMBICORT [Suspect]
     Dosage: 80/4.5, 2 PUFFS BID
     Route: 055

REACTIONS (1)
  - Chest discomfort [Unknown]
